FAERS Safety Report 4900291-4 (Version None)
Quarter: 2006Q1

REPORT INFORMATION
  Report Type: 
  Country: None (occurrence: None)
  Receive Date: 20060203
  Receipt Date: 20060125
  Transmission Date: 20060701
  Serious: Yes (Life-Threatening)
  Sender: FDA-Public Use
  Company Number: HU-JNJFOC-20060104996

PATIENT
  Sex: Male

DRUGS (2)
  1. REMICADE [Suspect]
     Dosage: OCCURRED ON 5TH INFUSION
     Route: 042
  2. MELOXICAM [Concomitant]
     Route: 065

REACTIONS (6)
  - DYSPHONIA [None]
  - DYSPNOEA [None]
  - FEELING HOT [None]
  - INFUSION RELATED REACTION [None]
  - NASAL CONGESTION [None]
  - SYNCOPE [None]
